FAERS Safety Report 9366793 (Version 4)
Quarter: 2013Q4

REPORT INFORMATION
  Report Type: Spontaneous
  Country: BE (occurrence: None)
  Receive Date: 20130620
  Receipt Date: 20131211
  Transmission Date: 20140711
  Serious: Yes (Hospitalization)
  Sender: FDA-Public Use
  Company Number: 2013BE001793

PATIENT
  Age: 64 Year
  Sex: Female

DRUGS (21)
  1. PONATINIB (AP24534) TABLET [Suspect]
     Indication: CHRONIC MYELOID LEUKAEMIA
     Route: 048
     Dates: start: 20110802
  2. MARCOUMAR (PHENPROCOUMON) [Concomitant]
  3. ASAFLOW (ACETYLSALICYLIC ACID [Concomitant]
  4. FOLAVIT  (FOLIC ACID) ONGOING [Concomitant]
  5. SIPRALEXA (ESCITALOPRAM) [Concomitant]
  6. ZOLPIDEM (ZOLPIDEM) [Concomitant]
  7. BEFACT (CYANOCOBALAMIN, PYRIDOXINE, THIAMINE) [Concomitant]
  8. MONTELUKAST [Concomitant]
  9. SERETIDE (FLUTICASONE PROPIONATE, SALMETEROL XINAFOATE) [Concomitant]
  10. DUOVENT (FENOTEROL HVDROBROMIDE. INRATROOIUM BROMIDE) [Concomitant]
  11. ZANTAC (RANITIDINE HYDROCHLORIDE) [Concomitant]
  12. CIRRUS (CETIRIZINE HYDROCHLORIDE, PSEUDOEPHEDRINE HYDROCHLORIDE) [Concomitant]
  13. LASIX (FUROSEMIDE) [Concomitant]
  14. AMLOR (AMLODIPINE BESILATE) [Concomitant]
  15. PANTOMED (PANTOPRAZOLE SODIUM SESQUIHYDRATE) [Concomitant]
  16. CLINDAMYCINE (CLINDAMYCIN HYDROCHLORIDE) [Concomitant]
  17. PARACODINE (DIHYDROCODEINE BITARTRATE) [Concomitant]
  18. GLUCOPHAGE (METFORMIN HYDROCHLORIDE) [Concomitant]
  19. VASEXTEN (BAMIDIPINE HYDROCHLORIDE) [Concomitant]
  20. GLUCOSAMINE (GLUCOSAMINE) [Concomitant]
  21. LOORTAN (LOSARTAN POTASSIUM) [Concomitant]

REACTIONS (7)
  - Intermittent claudication [None]
  - Peripheral artery stenosis [None]
  - Pancreatitis acute [None]
  - Femoral artery occlusion [None]
  - Peripheral artery stenosis [None]
  - Peripheral artery thrombosis [None]
  - Carotid artery stenosis [None]
